FAERS Safety Report 24618351 (Version 1)
Quarter: 2024Q4

REPORT INFORMATION
  Report Type: Spontaneous
  Country: US (occurrence: None)
  Receive Date: 20241113
  Receipt Date: 20241113
  Transmission Date: 20250115
  Serious: Yes (Hospitalization)
  Sender: Public
  Company Number: None

PATIENT
  Age: 88 Year
  Sex: Male

DRUGS (2)
  1. ATORVASTATIN CALCIUM [Suspect]
     Active Substance: ATORVASTATIN CALCIUM
     Indication: Hyperlipidaemia
     Dates: end: 20240918
  2. PREDNISONE [Suspect]
     Active Substance: PREDNISONE

REACTIONS (6)
  - Asthenia [None]
  - Gait inability [None]
  - Urinary tract infection [None]
  - Myopathy [None]
  - Therapy cessation [None]
  - Autoantibody positive [None]

NARRATIVE: CASE EVENT DATE: 20240911
